FAERS Safety Report 5406515-1 (Version None)
Quarter: 2007Q3

REPORT INFORMATION
  Report Type: 
  Country: None (occurrence: None)
  Receive Date: 20070806
  Receipt Date: 20070731
  Transmission Date: 20080115
  Serious: Yes (Hospitalization)
  Sender: FDA-Public Use
  Company Number: CA-PFIZER INC-2007031574

PATIENT
  Sex: Male
  Weight: 87 kg

DRUGS (5)
  1. SU-011,248 [Suspect]
     Indication: METASTATIC RENAL CELL CARCINOMA
     Dosage: DAILY DOSE:50MG-TEXT:3X12.5MG-FREQ:4WKS ON/ 2WKS OFF
     Route: 048
     Dates: start: 20060629, end: 20070417
  2. SU-011,248 [Suspect]
     Route: 048
     Dates: start: 20060817, end: 20070417
  3. SU-011,248 [Suspect]
  4. TYLENOL (CAPLET) [Concomitant]
     Indication: HEADACHE
  5. ZITHROMAX [Concomitant]
     Indication: COUGH
     Dates: start: 20070212, end: 20070216

REACTIONS (1)
  - CEREBROVASCULAR ACCIDENT [None]
